FAERS Safety Report 4849472-9 (Version None)
Quarter: 2005Q4

REPORT INFORMATION
  Report Type: 
  Country: None (occurrence: None)
  Receive Date: 20051207
  Receipt Date: 20050824
  Transmission Date: 20060501
  Serious: Yes (Other)
  Sender: FDA-Public Use
  Company Number: 2005BI016015

PATIENT
  Age: 48 Year
  Sex: Female

DRUGS (9)
  1. AVONEX [Suspect]
     Indication: MULTIPLE SCLEROSIS
     Dosage: 30 UG;QW;IM
     Route: 030
     Dates: start: 20020101
  2. DEPAKOTE [Concomitant]
  3. GABITRIL [Concomitant]
  4. MOTRIN [Concomitant]
  5. IMITREX [Concomitant]
  6. FAMVIR [Concomitant]
  7. MULTI-VITAMIN [Concomitant]
  8. SCOPOLAMINE PATCH [Concomitant]
  9. PROVIGIL [Concomitant]

REACTIONS (10)
  - CEREBELLAR ATROPHY [None]
  - CEREBRAL ISCHAEMIA [None]
  - CONDITION AGGRAVATED [None]
  - CONVULSION [None]
  - EPILEPSY [None]
  - HERPES VIRUS INFECTION [None]
  - MENINGIOMA [None]
  - MIGRAINE [None]
  - MULTIPLE SCLEROSIS [None]
  - SIMPLE PARTIAL SEIZURES [None]
